FAERS Safety Report 8389696-X (Version None)
Quarter: 2012Q2

REPORT INFORMATION
  Report Type: 
  Country: None (occurrence: None)
  Receive Date: 20120529
  Receipt Date: 20120515
  Transmission Date: 20120825
  Serious: Yes (Other)
  Sender: FDA-Public Use
  Company Number: BR-RANBAXY-2012RR-56704

PATIENT
  Age: 48 Year
  Sex: Female

DRUGS (4)
  1. DEFLAZACORT [Suspect]
     Indication: PEMPHIGUS
     Dosage: HIGH DOSES
     Route: 065
  2. RISPERIDONE [Suspect]
     Indication: MANIA
     Dosage: 2 MG, UNK
     Route: 065
  3. RISPERIDONE [Suspect]
     Dosage: 4 MG, UNK
     Route: 065
  4. BIPERIDEN HYDROCHLORIDE TAB [Suspect]
     Indication: PARKINSON'S DISEASE
     Route: 065

REACTIONS (3)
  - CONDITION AGGRAVATED [None]
  - PARKINSONISM [None]
  - MANIA [None]
